FAERS Safety Report 9843574 (Version 1)
Quarter: 2013Q4

REPORT INFORMATION
  Report Type: Spontaneous
  Country: US (occurrence: None)
  Receive Date: 20131219
  Receipt Date: 20131219
  Transmission Date: 20140711
  Serious: Yes (Hospitalization, Other)
  Sender: FDA-Public Use
  Company Number: 163-20785-13032217

PATIENT
  Age: 64 Year
  Sex: Female
  Weight: 94.35 kg

DRUGS (26)
  1. THALIDOMIDE (THALIDOMIDE) [Suspect]
     Indication: PLASMA CELL MYELOMA
     Dosage: 50 MG , 1 IN 1 D,  PO
     Route: 048
     Dates: start: 20121030
  2. DECADRON (DEXAMETHASONE) [Concomitant]
  3. CYTOXAN (CYCLOPHOSPHAMIDE) [Concomitant]
  4. ZOMETA (ZOLEDRONIC ACID) [Concomitant]
  5. IGG (IMMUNOGLOBULIN) (UNKNOWN) [Concomitant]
  6. IPRATROPIUM BROMIDE) (IPRATROPIUM BROMIDE) (SPRAY) [Concomitant]
  7. ALBUTEROL SULFATE (SALBUTAMOL SULFATE) [Concomitant]
  8. CYCLOSPORINE (CICLOSPORIN) (EYE DROPS) [Concomitant]
  9. POTASSIUN CHLORIDE (POTASSIUM CHLORIDE) (LIQUID) [Concomitant]
  10. FUROSEMIDE (FUROSEMIDE) (TABLETS) [Concomitant]
  11. DARBEPOETIN ALFA (DARBEPOETIN) [Concomitant]
  12. ZOLPIDEM (ZOLPIDEM) [Concomitant]
  13. SULFAMETHOXAZOLE-TRIMETHOPRIM (BACTRIM) [Concomitant]
  14. DICYCLOMIDE (DICYCLOVERINE HYDROCHLORIDE) [Concomitant]
  15. LISINOPRIL (LISINOPRIL) [Concomitant]
  16. CARVEDILOL (CARBEDILOL) [Concomitant]
  17. UREA (UREA) (OINTMENT) [Concomitant]
  18. PROCHLORPERAZINE MALEATE) (PROCHLORPERAZINE MALEATE) (UNKNOWN) [Concomitant]
  19. ACYCLOVIR (ACICLOVIR) (ACICLOVIR) [Concomitant]
  20. PRAVASTATIN (PRAVASTATIN) [Concomitant]
  21. FLUTICASONE (FLUTICASONE) [Concomitant]
  22. FOLIC ACID (FOLIC ACID) [Concomitant]
  23. CYANOCOBALAMIN (CYANOCOBALAMIN) (CYANOCOBALAMIN) [Concomitant]
  24. ALPHA LIPOIC ACID WITH ACETYL-L-CARNITINE (THIOCTIC ACID) [Concomitant]
  25. ASPRIN (ACETYLSALICYLIC ACID) [Concomitant]
  26. VELCADE (BORTEZOMIB) (INJECTION) [Suspect]
     Indication: PLASMA CELL MYELOMA
     Dosage: 1 MG/M2, 4 IN 28 D, SC
     Route: 058
     Dates: start: 20121030

REACTIONS (5)
  - Plasma cell myeloma [None]
  - Anaemia [None]
  - Platelet count decreased [None]
  - Pneumonia respiratory syncytial viral [None]
  - Neuropathy peripheral [None]
